FAERS Safety Report 15932429 (Version 1)
Quarter: 2019Q1

REPORT INFORMATION
  Report Type: Spontaneous
  Country: CH (occurrence: CH)
  Receive Date: 20190207
  Receipt Date: 20190207
  Transmission Date: 20190417
  Serious: Yes (Other)
  Sender: FDA-Public Use
  Company Number: CH-ASTRAZENECA-2019SE18059

PATIENT
  Age: 32 Year
  Sex: Female

DRUGS (14)
  1. NEXIUM [Suspect]
     Active Substance: ESOMEPRAZOLE MAGNESIUM
     Route: 042
     Dates: start: 201801
  2. DAFALGAN [Suspect]
     Active Substance: ACETAMINOPHEN
     Route: 048
  3. DALACIN [Concomitant]
     Active Substance: CLINDAMYCIN
     Dates: start: 201811
  4. PRONTOLAX [Concomitant]
     Active Substance: BISACODYL
     Dates: start: 201801
  5. CALCIMAGON D3 [Concomitant]
     Active Substance: CALCIUM\CHOLECALCIFEROL
     Dates: start: 2017
  6. GABAPENTIN. [Suspect]
     Active Substance: GABAPENTIN
     Route: 048
  7. SERTRALINE [Suspect]
     Active Substance: SERTRALINE HYDROCHLORIDE
     Route: 048
  8. HYDROCORTISONE. [Concomitant]
     Active Substance: HYDROCORTISONE
     Dates: start: 201801
  9. RIVOTRIL [Suspect]
     Active Substance: CLONAZEPAM
     Route: 042
  10. ANIDULAFUNGIN [Concomitant]
     Active Substance: ANIDULAFUNGIN
     Dates: start: 201811
  11. IRFEN [Suspect]
     Active Substance: IBUPROFEN
     Route: 048
     Dates: start: 2017
  12. CLEXANE [Concomitant]
     Active Substance: ENOXAPARIN SODIUM
     Dates: start: 201811
  13. SIRDALUD [Concomitant]
     Active Substance: TIZANIDINE
     Dates: start: 2017
  14. BULBOID [Concomitant]
     Dates: start: 2017

REACTIONS (1)
  - Inappropriate antidiuretic hormone secretion [Not Recovered/Not Resolved]

NARRATIVE: CASE EVENT DATE: 2018
